FAERS Safety Report 10069783 (Version 1)
Quarter: 2014Q2

REPORT INFORMATION
  Report Type: Spontaneous
  Country: US (occurrence: US)
  Receive Date: 20140410
  Receipt Date: 20140410
  Transmission Date: 20141212
  Serious: No
  Sender: FDA-Public Use
  Company Number: US-PFIZER INC-2014098950

PATIENT
  Age: 48 Year
  Sex: Female
  Weight: 81.63 kg

DRUGS (1)
  1. ADVIL [Suspect]
     Indication: HEADACHE
     Dosage: TWO CAPSULES, UNK
     Route: 048

REACTIONS (3)
  - Oral discomfort [Recovered/Resolved]
  - Nausea [Unknown]
  - Product quality issue [Unknown]
